FAERS Safety Report 14937858 (Version 1)
Quarter: 2018Q2

REPORT INFORMATION
  Report Type: Spontaneous
  Country: US (occurrence: US)
  Receive Date: 20180507
  Receipt Date: 20180507
  Transmission Date: 20180711
  Serious: Yes (Hospitalization)
  Sender: FDA-Public Use
  Company Number: None

PATIENT
  Age: 55 Year
  Sex: Female

DRUGS (1)
  1. TRACLEER [Suspect]
     Active Substance: BOSENTAN
     Indication: SCLERODERMA
     Route: 048
     Dates: start: 20160604

REACTIONS (5)
  - Sepsis [None]
  - Dyspnoea [None]
  - Pulmonary pain [None]
  - Respiratory symptom [None]
  - Drug ineffective [None]

NARRATIVE: CASE EVENT DATE: 20180506
